FAERS Safety Report 10023556 (Version 1)
Quarter: 2014Q1

REPORT INFORMATION
  Report Type: Spontaneous
  Country: FR (occurrence: FR)
  Receive Date: 20140320
  Receipt Date: 20140320
  Transmission Date: 20141002
  Serious: Yes (Other)
  Sender: FDA-Public Use
  Company Number: FR-JNJFOC-20140211014

PATIENT
  Age: 17 Year
  Sex: Male

DRUGS (2)
  1. REMICADE [Suspect]
     Indication: CROHN^S DISEASE
     Route: 042
     Dates: start: 20121224, end: 20131224
  2. IMUREL [Concomitant]
     Indication: CROHN^S DISEASE
     Route: 065
     Dates: end: 201304

REACTIONS (2)
  - Gastrointestinal candidiasis [Not Recovered/Not Resolved]
  - Pulmonary mass [Not Recovered/Not Resolved]
